FAERS Safety Report 8511857-7 (Version None)
Quarter: 2012Q3

REPORT INFORMATION
  Report Type: 
  Country: None (occurrence: None)
  Receive Date: 20120716
  Receipt Date: 20120713
  Transmission Date: 20120928
  Serious: Yes (Other)
  Sender: FDA-Public Use
  Company Number: PHFR2012GB003984

PATIENT
  Age: 64 Year
  Sex: Female
  Weight: 76.2 kg

DRUGS (7)
  1. GLUCOSAMINE [Concomitant]
  2. VALSARTAN [Suspect]
     Dosage: 120 MG, DAILY
  3. VITAMIN B COMPLEX CAP [Concomitant]
  4. SERRAPEPTASE [Concomitant]
  5. MSM [Concomitant]
  6. VALSARTAN [Suspect]
     Indication: HYPERTENSION
     Dosage: 80 MG, DAILY
  7. CHONDROITIN [Concomitant]

REACTIONS (2)
  - SKIN INDURATION [None]
  - ERYTHEMA [None]
